FAERS Safety Report 7750310-5 (Version None)
Quarter: 2011Q3

REPORT INFORMATION
  Report Type: 
  Country: None (occurrence: None)
  Receive Date: 20110914
  Receipt Date: 20110901
  Transmission Date: 20111222
  Serious: No
  Sender: FDA-Public Use
  Company Number: US-ELI_LILLY_AND_COMPANY-US201108002115

PATIENT
  Sex: Female
  Weight: 55.8 kg

DRUGS (16)
  1. ASPIRIN [Concomitant]
  2. FISH OIL [Concomitant]
  3. MYFORTIC [Concomitant]
  4. GABAPENTIN [Concomitant]
  5. PRAVASTATIN [Concomitant]
  6. FORTEO [Suspect]
     Indication: OSTEOPOROSIS
     Dosage: UNK
  7. PREDNISONE [Concomitant]
  8. NORMODYNE [Concomitant]
  9. ENALAPRIL MALEATE [Concomitant]
  10. PLAVIX [Concomitant]
  11. TACROLIMUS [Concomitant]
  12. ARANESP [Concomitant]
  13. HYDROCHLOROTHIAZIDE [Concomitant]
  14. FIORICET [Concomitant]
  15. NORVASC [Concomitant]
  16. TYLENOL                                 /SCH/ [Concomitant]

REACTIONS (1)
  - NO ADVERSE EVENT [None]
